FAERS Safety Report 8306593-6 (Version None)
Quarter: 2012Q2

REPORT INFORMATION
  Report Type: 
  Country: None (occurrence: None)
  Receive Date: 20120420
  Receipt Date: 20120420
  Transmission Date: 20120825
  Serious: Yes (Hospitalization)
  Sender: FDA-Public Use
  Company Number: None

PATIENT
  Age: 64 Year
  Sex: Female
  Weight: 99.8 kg

DRUGS (2)
  1. OXALIPLATIN [Suspect]
     Indication: METASTASIS
     Dosage: 85 MG/M2 DAYS 1, 15 INTRAVENOUS DRIP
     Route: 041
     Dates: start: 20120222, end: 20120404
  2. GEMCITABINE [Suspect]
     Indication: BILE DUCT CANCER
     Dosage: 1000 MG/M2 DAYS 1, 15 INTRAVENOUS DRIP
     Route: 041
     Dates: start: 20120222, end: 20120404

REACTIONS (6)
  - PYREXIA [None]
  - NAUSEA [None]
  - DYSPNOEA EXERTIONAL [None]
  - DEHYDRATION [None]
  - DIARRHOEA [None]
  - VOMITING [None]
